FAERS Safety Report 6504558-8 (Version None)
Quarter: 2009Q4

REPORT INFORMATION
  Report Type: 
  Country: None (occurrence: None)
  Receive Date: 20091215
  Receipt Date: 20091204
  Transmission Date: 20100525
  Serious: Yes (Hospitalization)
  Sender: FDA-Public Use
  Company Number: 2009AC000282

PATIENT
  Age: 77 Year
  Sex: Female

DRUGS (36)
  1. DIGOXIN [Suspect]
     Dosage: 0.125 MG;QD;PO
     Route: 048
     Dates: start: 20080918
  2. LISINOPRIL [Concomitant]
  3. LEVAQUIN [Concomitant]
  4. LORTAB [Concomitant]
  5. ACTOS [Concomitant]
  6. ZESTRIL [Concomitant]
  7. WARFARIN [Concomitant]
  8. TOPROL-XL [Concomitant]
  9. DESYREL [Concomitant]
  10. SYNTHROID [Concomitant]
  11. BUSPAR [Concomitant]
  12. DIOVAN [Concomitant]
  13. KLOR-CON [Concomitant]
  14. LASIX [Concomitant]
  15. SYNTHROID [Concomitant]
  16. ALPRAZOLAM [Concomitant]
  17. PROPOX-N [Concomitant]
  18. METOPROLOL TARTRATE [Concomitant]
  19. NIASPAN [Concomitant]
  20. DIOVAN [Concomitant]
  21. PAROXETINE [Concomitant]
  22. TRICOR [Concomitant]
  23. ACTOS [Concomitant]
  24. CEPHALEXIN [Concomitant]
  25. CYCLOBENZAPRINE [Concomitant]
  26. TRAMADOL [Concomitant]
  27. MECLIZINE [Concomitant]
  28. HISTA-VENT [Concomitant]
  29. SULFAMETHOXAZOLE AND TRIMETHOPRIM [Concomitant]
  30. CEFUROXIME [Concomitant]
  31. MAGNESIUM [Concomitant]
  32. WARFARIN [Concomitant]
  33. NITROFURATION [Concomitant]
  34. KLOR-CON [Concomitant]
  35. BUSPIRONE HCL [Concomitant]
  36. LIDODERM [Concomitant]

REACTIONS (13)
  - ABDOMINAL PAIN [None]
  - ASTHENIA [None]
  - BRADYCARDIA [None]
  - DIZZINESS [None]
  - ECONOMIC PROBLEM [None]
  - HEPATIC FUNCTION ABNORMAL [None]
  - HYPONATRAEMIA [None]
  - HYPOVOLAEMIA [None]
  - MULTIPLE INJURIES [None]
  - PYELONEPHRITIS [None]
  - SURGERY [None]
  - THERAPEUTIC AGENT TOXICITY [None]
  - URINARY TRACT INFECTION [None]
